FAERS Safety Report 8102672-7 (Version None)
Quarter: 2012Q1

REPORT INFORMATION
  Report Type: 
  Country: None (occurrence: None)
  Receive Date: 20120201
  Receipt Date: 20120123
  Transmission Date: 20120608
  Serious: Yes (Hospitalization)
  Sender: FDA-Public Use
  Company Number: GB-VERTEX PHARMACEUTICALS INC.-AE-2011-000287

PATIENT
  Sex: Male
  Weight: 101 kg

DRUGS (7)
  1. RIBAVIRIN [Suspect]
     Indication: HEPATITIS C
     Route: 048
     Dates: start: 20110319, end: 20110610
  2. CETIRIZINE [Concomitant]
     Indication: PRURITUS
     Dates: start: 20110503
  3. VX-950 [Suspect]
     Indication: HEPATITIS C
     Route: 048
     Dates: start: 20110319, end: 20110609
  4. CITALOPRAM HYDROBROMIDE [Concomitant]
     Indication: MOOD SWINGS
     Dates: start: 20101001
  5. HYDROCORTISONE [Concomitant]
     Indication: RASH
     Route: 061
     Dates: start: 20110503
  6. PEGINTERFERON ALFA-2A [Suspect]
     Indication: HEPATITIS C
     Route: 058
     Dates: start: 20110319, end: 20110610
  7. PROMETHAZINE [Concomitant]
     Indication: PRURITUS

REACTIONS (1)
  - RASH [None]
